FAERS Safety Report 13102901 (Version 1)
Quarter: 2017Q1

REPORT INFORMATION
  Report Type: Spontaneous
  Country: US (occurrence: US)
  Receive Date: 20170110
  Receipt Date: 20170110
  Transmission Date: 20170428
  Serious: No
  Sender: FDA-Public Use
  Company Number: US-ACTELION-A-US2016-140197

PATIENT
  Age: 34 Year
  Sex: Male

DRUGS (7)
  1. OMEGA 3 [Concomitant]
     Active Substance: OMEGA-3 FATTY ACIDS
  2. PREDNISONE. [Concomitant]
     Active Substance: PREDNISONE
  3. TRACLEER [Suspect]
     Active Substance: BOSENTAN
     Indication: PULMONARY ARTERIAL HYPERTENSION
     Dosage: 125 MG, BID
     Route: 048
     Dates: start: 20160706, end: 20161210
  4. GARLIC. [Concomitant]
     Active Substance: GARLIC
  5. METHOTREXATE. [Concomitant]
     Active Substance: METHOTREXATE
  6. COQ10 [Concomitant]
     Active Substance: UBIDECARENONE
  7. VITAMIN D3 [Concomitant]
     Active Substance: CHOLECALCIFEROL

REACTIONS (2)
  - Eye pain [Recovered/Resolved]
  - Peripheral swelling [Not Recovered/Not Resolved]
